FAERS Safety Report 9589517 (Version 1)
Quarter: 2013Q4

REPORT INFORMATION
  Report Type: Spontaneous
  Country: US (occurrence: US)
  Receive Date: 20131003
  Receipt Date: 20131003
  Transmission Date: 20140711
  Serious: No
  Sender: FDA-Public Use
  Company Number: US-AMGEN-USASP2012070520

PATIENT
  Sex: Female

DRUGS (4)
  1. ENBREL [Suspect]
     Indication: RHEUMATOID ARTHRITIS
     Dosage: 50 MG, QWK
     Route: 058
  2. HYDROCODONE W/APAP                 /00607101/ [Concomitant]
     Dosage: 5-500 MG, UNK
  3. CELEXA                             /00582602/ [Concomitant]
     Dosage: 10 MG, UNK
  4. PEPCID                             /00706001/ [Concomitant]
     Dosage: 20 MG, UNK

REACTIONS (2)
  - Pain [Unknown]
  - Local swelling [Unknown]
